FAERS Safety Report 18476266 (Version 5)
Quarter: 2022Q2

REPORT INFORMATION
  Report Type: Spontaneous
  Country: US (occurrence: US)
  Receive Date: 20201106
  Receipt Date: 20220425
  Transmission Date: 20220721
  Serious: No
  Sender: FDA-Public Use
  Company Number: US-PFIZER INC-2020425852

PATIENT
  Age: 36 Year
  Sex: Female
  Weight: 126 kg

DRUGS (12)
  1. PRISTIQ EXTENDED-RELEASE [Suspect]
     Active Substance: DESVENLAFAXINE SUCCINATE
     Indication: Depression
     Dosage: 150 MG, DAILY (TAKE 1 TABLET EVERY MORNING AND 2 TABLETS BY MOUTH EVERY EVENING)
     Route: 048
     Dates: start: 202010, end: 202010
  2. PRISTIQ EXTENDED-RELEASE [Suspect]
     Active Substance: DESVENLAFAXINE SUCCINATE
     Indication: Generalised anxiety disorder
     Dosage: 150 MG, DAILY (100MG TABLET IN THE MORNING ALONG WITH THE 50MG FOR A TOTAL OF 150MG DAILY)
     Route: 048
     Dates: start: 202010, end: 2020
  3. PRISTIQ EXTENDED-RELEASE [Suspect]
     Active Substance: DESVENLAFAXINE SUCCINATE
     Dosage: 150 MG, DAILY (ONE 100 MG TABLET ONCE DAILY (OD) WITH 50 MG)
     Route: 048
     Dates: start: 20201104, end: 202011
  4. PRISTIQ EXTENDED-RELEASE [Suspect]
     Active Substance: DESVENLAFAXINE SUCCINATE
     Dosage: 250 MG, DAILY (TAKE ONE 50 MG TABLET OD AND 100 MG TO EQUAL 150 MG AND TAKE ONE 100 MG TABLET OD)
     Route: 048
  5. PRISTIQ EXTENDED-RELEASE [Suspect]
     Active Substance: DESVENLAFAXINE SUCCINATE
     Dosage: 100 MG
  6. PRISTIQ EXTENDED-RELEASE [Suspect]
     Active Substance: DESVENLAFAXINE SUCCINATE
     Dosage: 50 MG
  7. PRISTIQ EXTENDED-RELEASE [Suspect]
     Active Substance: DESVENLAFAXINE SUCCINATE
     Dosage: 100 MG, 1X/DAY (1 TABLET 100 MG BY ORAL ROUTE ONCE DAILY)
     Route: 048
  8. PRISTIQ EXTENDED-RELEASE [Suspect]
     Active Substance: DESVENLAFAXINE SUCCINATE
     Dosage: 50 MG, 1X/DAY (1 TABLET 50 MG BY ORAL ROUTE ONCE DAILY)
     Route: 048
  9. DESVENLAFAXINE SUCCINATE [Suspect]
     Active Substance: DESVENLAFAXINE SUCCINATE
     Dosage: 150 MG, DAILY (ONE 100 MG AND ONE 50 MG TOGETHER AT SAME TIME OD, FOR A TOTAL OF 150 MG DAILY)
  10. DESVENLAFAXINE SUCCINATE [Suspect]
     Active Substance: DESVENLAFAXINE SUCCINATE
     Dosage: 100 MG
  11. DESVENLAFAXINE SUCCINATE [Suspect]
     Active Substance: DESVENLAFAXINE SUCCINATE
     Dosage: 50 MG, 1X/DAY
  12. DESVENLAFAXINE SUCCINATE [Suspect]
     Active Substance: DESVENLAFAXINE SUCCINATE
     Dosage: 150 MG, 1X/DAY (ONE 100 MG AND ONE 50 MG TOGETHER AT SAME TIME OD, FOR A TOTAL OF 150 MG DAILY)

REACTIONS (3)
  - Off label use [Unknown]
  - Prescribed overdose [Unknown]
  - Depression [Unknown]

NARRATIVE: CASE EVENT DATE: 20201001
